FAERS Safety Report 11111590 (Version 1)
Quarter: 2015Q2

REPORT INFORMATION
  Report Type: Spontaneous
  Country: CH (occurrence: CH)
  Receive Date: 20150514
  Receipt Date: 20150514
  Transmission Date: 20150821
  Serious: Yes (Other)
  Sender: FDA-Public Use
  Company Number: CH-UCBSA-2015015213

PATIENT
  Age: 0 Day
  Sex: Female
  Weight: 2.44 kg

DRUGS (3)
  1. PREDNISOL [Concomitant]
     Indication: CROHN^S DISEASE
     Dosage: 20 MG, ONCE DAILY (QD)
     Route: 064
     Dates: start: 20130913, end: 20130915
  2. CIMZIA [Suspect]
     Active Substance: CERTOLIZUMAB PEGOL
     Indication: CROHN^S DISEASE
     Dosage: 200 MG, EV 2 WEEKS(QOW)
     Route: 064
     Dates: end: 20131224
  3. ELEVIT PRONATAL [Concomitant]
     Indication: PREGNANCY
     Dosage: 1 DF, ONCE DAILY (QD)
     Route: 064

REACTIONS (3)
  - Small for dates baby [Recovered/Resolved]
  - Foetal exposure during pregnancy [Unknown]
  - Low birth weight baby [Recovered/Resolved]

NARRATIVE: CASE EVENT DATE: 20131224
